FAERS Safety Report 21121648 (Version 3)
Quarter: 2022Q4

REPORT INFORMATION
  Report Type: Report from Study
  Country: US (occurrence: US)
  Receive Date: 20220722
  Receipt Date: 20221017
  Transmission Date: 20230112
  Serious: Yes (Hospitalization)
  Sender: FDA-Public Use
  Company Number: US-TEVA-2021-US-1945067

PATIENT
  Age: 17 Year
  Sex: Male
  Weight: 71.4 kg

DRUGS (21)
  1. METHOTREXATE [Suspect]
     Active Substance: METHOTREXATE
     Indication: Acute lymphocytic leukaemia
     Dosage: LAST DOSE WAS TAKEN ON 21-JUL-2021
     Route: 048
     Dates: start: 20190222
  2. METHOTREXATE [Suspect]
     Active Substance: METHOTREXATE
     Dosage: LAST DOSE WAS TAKEN ON 07-JUL-2021
     Route: 037
     Dates: start: 20190118
  3. METHOTREXATE [Suspect]
     Active Substance: METHOTREXATE
     Dosage: 15 MILLIGRAM ONCE, RECEIVED THE LAST DOSE ON 24-MAY-2022
     Route: 037
     Dates: start: 20211214
  4. METHOTREXATE [Suspect]
     Active Substance: METHOTREXATE
     Dosage: 9335 MILLIGRAM ONCE, RECEIVED THE LAST DOSE ON 16-MAR-2022
     Route: 042
     Dates: start: 20220301
  5. PREDNISONE [Suspect]
     Active Substance: PREDNISONE
     Indication: Acute lymphocytic leukaemia
     Dosage: LAST DOSE WAS TAKEN ON 11-JUL-2021
     Route: 048
     Dates: start: 20210707
  6. VINCRISTINE [Suspect]
     Active Substance: VINCRISTINE
     Indication: Acute lymphocytic leukaemia
     Dosage: LAST DOSE WAS TAKEN ON 07-JUL-2021
     Route: 042
     Dates: start: 20190118
  7. VINCRISTINE [Suspect]
     Active Substance: VINCRISTINE
     Dosage: 22 MILLIGRAM ONCE, RECEIVED THE LAST DOSE ON 07-JUN-2022
     Route: 042
     Dates: start: 20211214
  8. DOXORUBICIN [Suspect]
     Active Substance: DOXORUBICIN
     Indication: Acute lymphocytic leukaemia
     Dosage: 48 MILLIGRAM ONCE DAYS 1, 8, 15 OF DI, RECEIVED THE LAST DOSE ON 07-JUN-2022
     Route: 042
     Dates: start: 20220524
  9. LEUCOVORIN [Suspect]
     Active Substance: LEUCOVORIN
     Indication: Acute lymphocytic leukaemia
     Dosage: 28 MILLIGRAM Q6 FOR 3 DOSES AFTER HD MTX, RECEIVED THE LAST DOSE ON 29-APR-2022
     Route: 042
     Dates: start: 20220301
  10. MERCAPTOPURINE [Suspect]
     Active Substance: MERCAPTOPURINE
     Indication: Acute lymphocytic leukaemia
     Dosage: LAST DOSE WAS TAKEN ON 22-JUL-2021
     Route: 048
     Dates: start: 20190215
  11. MERCAPTOPURINE [Suspect]
     Active Substance: MERCAPTOPURINE
     Dosage: 2.5 TABS FIVE DAYS PER WEEKS, 2 TABS TWO DAYS PER WEEK, RECEIVED THE LAST DOSE ON 10-MAY-2022
     Route: 048
     Dates: start: 20211214
  12. DEXAMETHASONE [Suspect]
     Active Substance: DEXAMETHASONE
     Indication: Acute lymphocytic leukaemia
     Dosage: RECEIVED THE LAST DOSE ON 13-JUN-2022
     Route: 048
     Dates: start: 20220524
  13. CYCLOPHOSPHAMIDE [Suspect]
     Active Substance: CYCLOPHOSPHAMIDE
     Indication: Acute lymphocytic leukaemia
     Dosage: 1950 MG, ONCE, RECEIVED THE LAST DOSE ON 25-JUN-2022
     Route: 042
     Dates: start: 20211214
  14. CYTARABINE [Suspect]
     Active Substance: CYTARABINE
     Indication: Acute lymphocytic leukaemia
     Dosage: 145 MG, ONCE, RECEIVED THE LAST DOSE ON 04-FEB-022
     Route: 042
     Dates: start: 20211214
  15. PEGASPARGASE [Suspect]
     Active Substance: PEGASPARGASE
     Indication: Acute lymphocytic leukaemia
     Dosage: 3750 IU/M2 ONCE, RECEIVED THE LAST DOSE 08-FEB-2022
     Route: 042
     Dates: start: 20211215
  16. RUXOLITINIB [Suspect]
     Active Substance: RUXOLITINIB
     Indication: Acute lymphocytic leukaemia
     Dosage: LAST DOSE WAS TAKEN ON 22-JUL-2021
     Route: 048
     Dates: start: 20190121
  17. RUXOLITINIB [Suspect]
     Active Substance: RUXOLITINIB
     Dosage: 190 MILLIGRAM DAILY; RECEIVED THE LAST DOSE ON 06-JUN-2022
     Route: 048
     Dates: start: 20211214
  18. THIOGUANINE [Suspect]
     Active Substance: THIOGUANINE
     Indication: Acute lymphocytic leukaemia
     Dosage: 40MG, 3 TABLETS QD FOR 5 DAYS AND 2.5 TABLETS QD FOR 2 DAYS PER WEEK ON DAYS 29-42, RECEIVED THE LAS
     Route: 048
  19. BACTRIM [Concomitant]
     Active Substance: SULFAMETHOXAZOLE\TRIMETHOPRIM
     Indication: Product used for unknown indication
     Route: 065
     Dates: start: 20190222
  20. BACTRIM [Concomitant]
     Active Substance: SULFAMETHOXAZOLE\TRIMETHOPRIM
     Route: 065
     Dates: start: 20211105
  21. ISAVUCONAZONIUM SULFATE [Concomitant]
     Active Substance: ISAVUCONAZONIUM SULFATE
     Indication: Product used for unknown indication
     Dates: start: 20220305

REACTIONS (4)
  - Febrile neutropenia [Recovered/Resolved]
  - Mucosal inflammation [Recovered/Resolved]
  - Parainfluenzae virus infection [Unknown]
  - Fungal infection [Unknown]

NARRATIVE: CASE EVENT DATE: 20210725
